FAERS Safety Report 19349810 (Version 2)
Quarter: 2021Q3

REPORT INFORMATION
  Report Type: Spontaneous
  Country: CH (occurrence: CH)
  Receive Date: 20210531
  Receipt Date: 20210702
  Transmission Date: 20211014
  Serious: Yes (Other)
  Sender: FDA-Public Use
  Company Number: CH-TEVA-2021-CH-1916242

PATIENT
  Sex: Female

DRUGS (3)
  1. AMOXICILLIN. [Suspect]
     Active Substance: AMOXICILLIN
     Indication: ORAL INFECTION
     Route: 065
  2. FLAGYL [Suspect]
     Active Substance: METRONIDAZOLE\METRONIDAZOLE HYDROCHLORIDE
     Indication: ORAL INFECTION
     Route: 065
  3. OLANZAPINE?MEPHA ORO [Suspect]
     Active Substance: OLANZAPINE
     Indication: SCHIZOPHRENIA
     Route: 060

REACTIONS (8)
  - Depressed mood [Recovering/Resolving]
  - Tongue disorder [Not Recovered/Not Resolved]
  - Trichoglossia [Not Recovered/Not Resolved]
  - Weight increased [Unknown]
  - Drug level below therapeutic [Recovering/Resolving]
  - Suspected product quality issue [Unknown]
  - Anxiety [Recovering/Resolving]
  - Oral infection [Unknown]

NARRATIVE: CASE EVENT DATE: 2021
